FAERS Safety Report 19051243 (Version 1)
Quarter: 2021Q1

REPORT INFORMATION
  Report Type: Spontaneous
  Country: FR (occurrence: US)
  Receive Date: 20210323
  Receipt Date: 20210323
  Transmission Date: 20210420
  Serious: Yes (Death, Other)
  Sender: FDA-Public Use
  Company Number: FR-SUN PHARMACEUTICAL INDUSTRIES LTD-2021R1-286970

PATIENT
  Age: 6 Year
  Sex: Male

DRUGS (8)
  1. BECLOMETHASONE [Suspect]
     Active Substance: BECLOMETHASONE
     Indication: CEREBRAL PALSY
     Dosage: UNK
     Route: 065
  2. BOTOX [Suspect]
     Active Substance: ONABOTULINUMTOXINA
     Indication: CEREBRAL PALSY
     Dosage: UNK
     Route: 065
  3. MELATONINE [Suspect]
     Active Substance: MELATONIN
     Indication: CEREBRAL PALSY
     Dosage: UNK
     Route: 065
  4. KETOTIFEN [Suspect]
     Active Substance: KETOTIFEN
     Indication: CEREBRAL PALSY
     Dosage: UNK
     Route: 065
  5. CETIRIZINE [Suspect]
     Active Substance: CETIRIZINE HYDROCHLORIDE
     Indication: CEREBRAL PALSY
     Dosage: UNK
     Route: 065
  6. BACLOFEN. [Suspect]
     Active Substance: BACLOFEN
     Indication: CEREBRAL PALSY
     Dosage: UNK
     Route: 065
  7. IPRATROPIUM [Suspect]
     Active Substance: IPRATROPIUM
     Indication: CEREBRAL PALSY
     Dosage: UNK
     Route: 065
  8. HYOSCINE [Suspect]
     Active Substance: SCOPOLAMINE
     Indication: CEREBRAL PALSY
     Dosage: UNK
     Route: 065

REACTIONS (1)
  - Death [Fatal]
